FAERS Safety Report 8531471-7 (Version None)
Quarter: 2012Q3

REPORT INFORMATION
  Report Type: 
  Country: None (occurrence: None)
  Receive Date: 20120723
  Receipt Date: 20120711
  Transmission Date: 20120928
  Serious: No
  Sender: FDA-Public Use
  Company Number: US-B.I. PHARMACEUTICALS,INC./RIDGEFIELD-2012-BP-15415BP

PATIENT

DRUGS (5)
  1. ADVAIR DISKUS 100/50 [Suspect]
  2. ZARFIRLUKAST [Concomitant]
     Indication: ASTHMA
  3. BUDESONIDE [Concomitant]
  4. SPIRIVA [Suspect]
  5. BROVANA [Concomitant]

REACTIONS (1)
  - TREMOR [None]
